FAERS Safety Report 9683999 (Version 11)
Quarter: 2014Q3

REPORT INFORMATION
  Report Type: Report from Study
  Country: CA (occurrence: CA)
  Receive Date: 20131112
  Receipt Date: 20140828
  Transmission Date: 20150326
  Serious: Yes (Death, Life-Threatening, Hospitalization, Other)
  Sender: FDA-Public Use
  Company Number: PHHY2013CA122727

PATIENT
  Age: 71 Year
  Sex: Male

DRUGS (10)
  1. EXJADE [Suspect]
     Active Substance: DEFERASIROX
     Dosage: UNK UKN, UNK
     Route: 048
     Dates: end: 20131023
  2. CYKLOKAPRON [Concomitant]
     Active Substance: TRANEXAMIC ACID
     Indication: PROCOAGULANT THERAPY
     Dosage: UNK UKN, UNK
  3. DIURETICS [Concomitant]
     Active Substance: UNSPECIFIED INGREDIENT
     Dosage: UNK UKN, UNK
  4. LASIX [Concomitant]
     Active Substance: FUROSEMIDE
     Dosage: UNK
  5. EXJADE [Suspect]
     Active Substance: DEFERASIROX
     Dosage: 2000 MG QD
     Route: 048
     Dates: start: 20140210, end: 20140605
  6. LASIX [Concomitant]
     Active Substance: FUROSEMIDE
     Dosage: UNK
  7. DIURETICS [Concomitant]
     Active Substance: UNSPECIFIED INGREDIENT
     Dosage: UNK UKN, UNK
  8. CYCLOSPORINE. [Concomitant]
     Active Substance: CYCLOSPORINE
     Dosage: UNK UKN, UNK
  9. EXJADE [Suspect]
     Active Substance: DEFERASIROX
     Indication: MYELODYSPLASTIC SYNDROME
     Dosage: 2000 MG, QD
     Route: 048
     Dates: start: 20121025
  10. EXJADE [Suspect]
     Active Substance: DEFERASIROX
     Dosage: 2000 MG, QD
     Route: 048
     Dates: start: 20131208

REACTIONS (15)
  - Pain [Recovered/Resolved]
  - Colitis [Recovered/Resolved]
  - Cardiac disorder [Recovering/Resolving]
  - Febrile neutropenia [Recovered/Resolved]
  - Heart rate increased [Recovered/Resolved]
  - Bacterial sepsis [Recovered/Resolved]
  - Tremor [Unknown]
  - Pyrexia [Unknown]
  - Platelet count decreased [Unknown]
  - Blood test abnormal [Unknown]
  - Back pain [Recovering/Resolving]
  - Pneumonia fungal [Fatal]
  - Ventricular tachycardia [Recovered/Resolved]
  - Tooth abscess [Recovered/Resolved]
  - Blood creatinine increased [Recovering/Resolving]

NARRATIVE: CASE EVENT DATE: 20131023
